FAERS Safety Report 4894705-6 (Version None)
Quarter: 2006Q1

REPORT INFORMATION
  Report Type: 
  Country: None (occurrence: None)
  Receive Date: 20060127
  Receipt Date: 20060127
  Transmission Date: 20060701
  Serious: Yes (Death)
  Sender: FDA-Public Use
  Company Number: None

PATIENT
  Sex: Male
  Weight: 97.5234 kg

DRUGS (1)
  1. OXALIPLATIN 100 MG/ML [Suspect]
     Indication: RECTAL CANCER
     Dosage: 188 MG DAY 1+15 Q28DYS IV
     Route: 042
     Dates: start: 20050720, end: 20051221

REACTIONS (4)
  - DYSPNOEA [None]
  - IDIOPATHIC PULMONARY FIBROSIS [None]
  - INTERSTITIAL LUNG DISEASE [None]
  - LUNG INFILTRATION [None]
